FAERS Safety Report 11791405 (Version 1)
Quarter: 2015Q4

REPORT INFORMATION
  Report Type: Spontaneous
  Country: CH (occurrence: CH)
  Receive Date: 20151201
  Receipt Date: 20151201
  Transmission Date: 20160305
  Serious: Yes (Hospitalization)
  Sender: FDA-Public Use
  Company Number: CH-JNJFOC-20151125028

PATIENT
  Age: 39 Year
  Sex: Male

DRUGS (6)
  1. ORFIRIL [Suspect]
     Active Substance: VALPROIC ACID
     Indication: BIPOLAR DISORDER
     Route: 048
     Dates: start: 20140415, end: 20140415
  2. ORFIRIL [Suspect]
     Active Substance: VALPROIC ACID
     Indication: BIPOLAR DISORDER
     Dosage: HALF TABLET OF 500MG
     Route: 048
  3. LORAMET [Suspect]
     Active Substance: LORMETAZEPAM
     Indication: BIPOLAR DISORDER
     Dosage: ONE TO THREE TABLETS BEFORE SLEEPING
     Route: 048
  4. INVEGA [Suspect]
     Active Substance: PALIPERIDONE
     Indication: BIPOLAR DISORDER
     Route: 048
  5. INVEGA [Suspect]
     Active Substance: PALIPERIDONE
     Indication: BIPOLAR DISORDER
     Route: 048
     Dates: start: 20140415, end: 20140415
  6. LORAMET [Suspect]
     Active Substance: LORMETAZEPAM
     Indication: BIPOLAR DISORDER
     Route: 048
     Dates: start: 20140415, end: 20140415

REACTIONS (6)
  - Intentional overdose [Recovered/Resolved]
  - Trismus [Recovered/Resolved]
  - Dystonia [Recovered/Resolved]
  - Muscle rigidity [Recovered/Resolved]
  - Drug abuse [Recovered/Resolved]
  - Muscle spasms [Recovered/Resolved]

NARRATIVE: CASE EVENT DATE: 20140415
